FAERS Safety Report 5750552-4 (Version None)
Quarter: 2008Q2

REPORT INFORMATION
  Report Type: 
  Country: None (occurrence: None)
  Receive Date: 20080528
  Receipt Date: 20080516
  Transmission Date: 20081010
  Serious: Yes (Other)
  Sender: FDA-Public Use
  Company Number: GB-ROCHE-566222

PATIENT
  Sex: Female
  Weight: 120.7 kg

DRUGS (3)
  1. ORLISTAT [Suspect]
     Indication: OBESITY
     Route: 048
     Dates: start: 20080417, end: 20080502
  2. FLUOXETINE HCL [Concomitant]
     Indication: DEPRESSION
     Route: 048
  3. TOLTERODINE TARTRATE [Concomitant]
     Route: 048

REACTIONS (1)
  - OVARIAN CYST [None]
